FAERS Safety Report 23576149 (Version 1)
Quarter: 2024Q1

REPORT INFORMATION
  Report Type: Spontaneous
  Country: DE (occurrence: DE)
  Receive Date: 20240228
  Receipt Date: 20240228
  Transmission Date: 20240410
  Serious: Yes (Other)
  Sender: FDA-Public Use
  Company Number: None

PATIENT
  Age: 39 Year
  Sex: Female
  Weight: 57 kg

DRUGS (1)
  1. LEVOCETIRIZINE DIHYDROCHLORIDE [Suspect]
     Active Substance: LEVOCETIRIZINE DIHYDROCHLORIDE
     Indication: Seasonal allergy
     Dosage: 1 TABLET A DAY
     Route: 048
     Dates: start: 2006

REACTIONS (5)
  - Suicidal ideation [Recovered/Resolved]
  - Depressed mood [Recovered/Resolved]
  - Depression [Recovered/Resolved]
  - Emotional distress [Not Recovered/Not Resolved]
  - Neuritis [Not Recovered/Not Resolved]
